FAERS Safety Report 19458045 (Version 1)
Quarter: 2021Q2

REPORT INFORMATION
  Report Type: Spontaneous
  Country: GB (occurrence: GB)
  Receive Date: 20210624
  Receipt Date: 20210624
  Transmission Date: 20210717
  Serious: Yes (Hospitalization, Disabling, Other)
  Sender: FDA-Public Use
  Company Number: GB-AUROBINDO-AUR-APL-2021-026486

PATIENT
  Age: 65 Year
  Sex: Male
  Weight: 65.31 kg

DRUGS (1)
  1. IBUPROFEN  400 MG TABLETS [Suspect]
     Active Substance: IBUPROFEN
     Indication: ILL-DEFINED DISORDER
     Dosage: APPROX 6 X 400MG TABLETS PER DAY
     Route: 048
     Dates: start: 20200901, end: 20200921

REACTIONS (1)
  - Hepatic function abnormal [Recovered/Resolved]

NARRATIVE: CASE EVENT DATE: 20200925
